FAERS Safety Report 16222904 (Version 12)
Quarter: 2020Q4

REPORT INFORMATION
  Report Type: Spontaneous
  Country: US (occurrence: US)
  Receive Date: 20190422
  Receipt Date: 20201216
  Transmission Date: 20210113
  Serious: No
  Sender: FDA-Public Use
  Company Number: US-PFIZER INC-2018514600

PATIENT
  Age: 60 Year
  Sex: Female
  Weight: 69 kg

DRUGS (7)
  1. LYRICA [Suspect]
     Active Substance: PREGABALIN
     Indication: MUSCULOSKELETAL PAIN
     Dosage: 50 MG, 3X/DAY (1 CAPSULE 3 TIMES DAILY)
     Route: 048
     Dates: start: 20181120
  2. LYRICA [Suspect]
     Active Substance: PREGABALIN
     Indication: PAIN IN EXTREMITY
     Dosage: 50 MG, 1X/DAY
     Route: 048
  3. LYRICA [Suspect]
     Active Substance: PREGABALIN
     Indication: NEURALGIA
     Dosage: UNK
     Dates: start: 201812
  4. IBUPROFEN. [Concomitant]
     Active Substance: IBUPROFEN
     Indication: ABDOMINAL PAIN UPPER
     Dosage: UNK, AS NEEDED
     Route: 048
     Dates: start: 201805
  5. IBUPROFEN. [Concomitant]
     Active Substance: IBUPROFEN
     Indication: NEURALGIA
     Dosage: 800 MG, 3X/DAY
     Route: 048
  6. LYRICA [Suspect]
     Active Substance: PREGABALIN
     Indication: PARAESTHESIA
     Dosage: 100 MG, 3X/DAY, (TAKE 1 CAPSULE (100 MG TOTAL) BY MOUTH 3 (THREE) TIMES DAILY)
     Route: 048
     Dates: start: 20201026
  7. LYRICA [Suspect]
     Active Substance: PREGABALIN
     Indication: NERVE INJURY
     Dosage: 50 MG, 3X/DAY
     Route: 048
     Dates: start: 20191114

REACTIONS (11)
  - Swelling [Unknown]
  - Nausea [Unknown]
  - Abdominal distension [Unknown]
  - Expired product administered [Unknown]
  - Intentional product use issue [Unknown]
  - Abdominal pain upper [Not Recovered/Not Resolved]
  - Weight increased [Unknown]
  - Therapeutic product effect incomplete [Unknown]
  - Fluid retention [Not Recovered/Not Resolved]
  - Decreased appetite [Unknown]
  - Dysuria [Not Recovered/Not Resolved]

NARRATIVE: CASE EVENT DATE: 201904
